FAERS Safety Report 16003533 (Version 2)
Quarter: 2019Q2

REPORT INFORMATION
  Report Type: Spontaneous
  Country: PT (occurrence: PT)
  Receive Date: 20190226
  Receipt Date: 20190630
  Transmission Date: 20190711
  Serious: Yes (Death, Hospitalization, Other)
  Sender: FDA-Public Use
  Company Number: PT-ROCHE-2268747

PATIENT
  Age: 76 Year
  Sex: Female

DRUGS (3)
  1. VALGANCICLOVIR. [Suspect]
     Active Substance: VALGANCICLOVIR
     Indication: CYTOMEGALOVIRUS COLITIS
     Route: 065
  2. METHOTREXATE. [Suspect]
     Active Substance: METHOTREXATE
     Indication: RHEUMATOID ARTHRITIS
     Dosage: UNK
     Route: 065
  3. PREDNISOLONE. [Suspect]
     Active Substance: PREDNISOLONE
     Indication: RHEUMATOID ARTHRITIS
     Dosage: UNK
     Route: 065

REACTIONS (5)
  - Cytomegalovirus colitis [Unknown]
  - Refractory cytopenia with unilineage dysplasia [Unknown]
  - Thrombocytopenia [Fatal]
  - Septic shock [Unknown]
  - Leukopenia [Fatal]
